FAERS Safety Report 9410572 (Version 1)
Quarter: 2013Q3

REPORT INFORMATION
  Report Type: Spontaneous
  Country: US (occurrence: None)
  Receive Date: 20130718
  Receipt Date: 20130718
  Transmission Date: 20140515
  Serious: Yes (Other)
  Sender: FDA-Public Use
  Company Number: None

PATIENT
  Age: 54 Year
  Sex: Female

DRUGS (3)
  1. RIBAVIRIN [Suspect]
     Indication: HEPATITIS C
     Dosage: INCIVEK 375MG
     Dates: start: 20130517, end: 20130701
  2. PEGASYS [Suspect]
     Indication: HEPATITIS C
     Dates: start: 20130517, end: 20130701
  3. INCIVEK [Suspect]

REACTIONS (6)
  - Platelet count decreased [None]
  - Haemoglobin decreased [None]
  - Red blood cell count decreased [None]
  - Fatigue [None]
  - Somnolence [None]
  - Asthenia [None]
